FAERS Safety Report 20374049 (Version 7)
Quarter: 2022Q1

REPORT INFORMATION
  Report Type: Report from Study
  Country: DE (occurrence: DE)
  Receive Date: 20220125
  Receipt Date: 20220325
  Transmission Date: 20220423
  Serious: No
  Sender: FDA-Public Use
  Company Number: DE-LEO Pharma-340642

PATIENT
  Age: 67 Year
  Sex: Male

DRUGS (19)
  1. TRALOKINUMAB [Suspect]
     Active Substance: TRALOKINUMAB
     Indication: Dermatitis atopic
     Dosage: DOSAGE FIRST DOSE 4 X 150 MG / PRE-FILLED SYRINGES
     Route: 058
     Dates: start: 20220110, end: 20220110
  2. TRALOKINUMAB [Suspect]
     Active Substance: TRALOKINUMAB
     Indication: Dermatitis atopic
     Dosage: DOSAGE FIRST DOSE 4 X 150 MG / PRE-FILLED SYRINGES
     Route: 058
     Dates: start: 20220110, end: 20220110
  3. TRALOKINUMAB [Suspect]
     Active Substance: TRALOKINUMAB
     Indication: Dermatitis atopic
     Dosage: DOSAGE FIRST DOSE 2 X 150 MG / PRE-FILLED SYRINGES
     Route: 058
     Dates: start: 20220124, end: 20220207
  4. TRALOKINUMAB [Suspect]
     Active Substance: TRALOKINUMAB
     Indication: Dermatitis atopic
     Dosage: DOSAGE FIRST DOSE 2 X 150 MG / PRE-FILLED SYRINGES
     Route: 058
     Dates: start: 20220124, end: 20220207
  5. TRALOKINUMAB [Suspect]
     Active Substance: TRALOKINUMAB
     Indication: Dermatitis atopic
     Dosage: DOSAGE FIRST DOSE 4 X 150 MG / PRE-FILLED SYRINGES
     Route: 058
     Dates: start: 20220110, end: 20220110
  6. TRALOKINUMAB [Suspect]
     Active Substance: TRALOKINUMAB
     Indication: Dermatitis atopic
     Dosage: DOSAGE FIRST DOSE 4 X 150 MG / PRE-FILLED SYRINGES
     Route: 058
     Dates: start: 20220110, end: 20220110
  7. TRALOKINUMAB [Suspect]
     Active Substance: TRALOKINUMAB
     Indication: Dermatitis atopic
     Dosage: DOSAGE FIRST DOSE 2 X 150 MG / PRE-FILLED SYRINGES
     Route: 058
     Dates: start: 20220124, end: 20220207
  8. TRALOKINUMAB [Suspect]
     Active Substance: TRALOKINUMAB
     Indication: Dermatitis atopic
     Dosage: DOSAGE FIRST DOSE 2 X 150 MG / PRE-FILLED SYRINGES
     Route: 058
     Dates: start: 20220124, end: 20220207
  9. DEVICE [Suspect]
     Active Substance: DEVICE
     Indication: Dermatitis atopic
  10. TRALOKINUMAB [Suspect]
     Active Substance: TRALOKINUMAB
     Indication: Dermatitis atopic
     Dosage: DOSAGE FIRST DOSE 4 X 150 MG / PRE-FILLED SYRINGES
     Route: 058
     Dates: start: 20220110, end: 20220110
  11. TRALOKINUMAB [Suspect]
     Active Substance: TRALOKINUMAB
     Indication: Dermatitis atopic
     Dosage: DOSAGE FIRST DOSE 4 X 150 MG / PRE-FILLED SYRINGES
     Route: 058
     Dates: start: 20220110, end: 20220110
  12. TRALOKINUMAB [Suspect]
     Active Substance: TRALOKINUMAB
     Indication: Dermatitis atopic
     Dosage: DOSAGE FIRST DOSE 2 X 150 MG / PRE-FILLED SYRINGES
     Route: 058
     Dates: start: 20220124, end: 20220207
  13. TRALOKINUMAB [Suspect]
     Active Substance: TRALOKINUMAB
     Indication: Dermatitis atopic
     Dosage: DOSAGE FIRST DOSE 2 X 150 MG / PRE-FILLED SYRINGES
     Route: 058
     Dates: start: 20220124, end: 20220207
  14. TRALOKINUMAB [Suspect]
     Active Substance: TRALOKINUMAB
     Indication: Dermatitis atopic
     Dosage: DOSAGE FIRST DOSE 4 X 150 MG / PRE-FILLED SYRINGES
     Route: 058
     Dates: start: 20220110, end: 20220110
  15. TRALOKINUMAB [Suspect]
     Active Substance: TRALOKINUMAB
     Indication: Dermatitis atopic
     Dosage: DOSAGE FIRST DOSE 4 X 150 MG / PRE-FILLED SYRINGES
     Route: 058
     Dates: start: 20220110, end: 20220110
  16. TRALOKINUMAB [Suspect]
     Active Substance: TRALOKINUMAB
     Indication: Dermatitis atopic
     Dosage: DOSAGE FIRST DOSE 2 X 150 MG / PRE-FILLED SYRINGES
     Route: 058
     Dates: start: 20220124, end: 20220207
  17. TRALOKINUMAB [Suspect]
     Active Substance: TRALOKINUMAB
     Indication: Dermatitis atopic
     Dosage: DOSAGE FIRST DOSE 2 X 150 MG / PRE-FILLED SYRINGES
     Route: 058
     Dates: start: 20220124, end: 20220207
  18. ELIDEL [Concomitant]
     Active Substance: PIMECROLIMUS
     Indication: Dermatitis atopic
     Dosage: AS NEEDED (DOSAGE NOT REPORTED).
     Route: 061
  19. MOMETASONE FUROATE [Concomitant]
     Active Substance: MOMETASONE FUROATE
     Indication: Dermatitis atopic
     Dosage: AS NEEDED (DOSAGE NOT REPORTED).
     Route: 061

REACTIONS (7)
  - Skin burning sensation [Recovering/Resolving]
  - Skin burning sensation [Recovering/Resolving]
  - Erythema [Recovering/Resolving]
  - Pruritus [Recovering/Resolving]
  - Pruritus [Recovering/Resolving]
  - Drug ineffective [Unknown]
  - Erythema [Recovering/Resolving]

NARRATIVE: CASE EVENT DATE: 20220111
